FAERS Safety Report 8918100 (Version 6)
Quarter: 2013Q2

REPORT INFORMATION
  Report Type: Spontaneous
  Country: US (occurrence: US)
  Receive Date: 20121120
  Receipt Date: 20130412
  Transmission Date: 20140414
  Serious: Yes (Hospitalization)
  Sender: FDA-Public Use
  Company Number: US-JNJFOC-20121106376

PATIENT
  Age: 66 Year
  Sex: Female
  Weight: 72.58 kg

DRUGS (5)
  1. LISTERINE ADVANCED TARTAR CONTROL-CITRUS [Suspect]
     Indication: DENTAL DISORDER PROPHYLAXIS
     Dosage: NOT A FULL CAP
     Route: 048
     Dates: start: 20120610, end: 20120610
  2. METFORMIN [Concomitant]
     Route: 048
  3. HYDROCHLOROTHIAZIDE [Concomitant]
     Route: 065
  4. SIMVASTATIN [Concomitant]
     Route: 048
  5. ENDOCET [Concomitant]
     Route: 048

REACTIONS (2)
  - Angioedema [Recovering/Resolving]
  - Oral discomfort [Recovered/Resolved]
